FAERS Safety Report 7371932-X (Version None)
Quarter: 2011Q1

REPORT INFORMATION
  Report Type: 
  Country: None (occurrence: None)
  Receive Date: 20110324
  Receipt Date: 20100706
  Transmission Date: 20110831
  Serious: No
  Sender: FDA-Public Use
  Company Number: US-BAUSCH-2010BL003669

PATIENT
  Age: 33 Year
  Sex: Female
  Weight: 81 kg

DRUGS (2)
  1. ZYRTEC [Concomitant]
     Indication: SEASONAL ALLERGY
     Route: 048
  2. FLUNISOLIDE [Suspect]
     Indication: NASAL DISORDER
     Route: 045
     Dates: start: 20100520, end: 20100528

REACTIONS (2)
  - NASAL DISCOMFORT [None]
  - THROAT IRRITATION [None]
